FAERS Safety Report 9352415 (Version 1)
Quarter: 2013Q2

REPORT INFORMATION
  Report Type: Spontaneous
  Country: US (occurrence: US)
  Receive Date: 20130617
  Receipt Date: 20130617
  Transmission Date: 20140414
  Serious: Yes (Hospitalization)
  Sender: FDA-Public Use
  Company Number: US-B.I. PHARMACEUTICALS,INC./RIDGEFIELD-2013-BI-17080BP

PATIENT
  Age: 48 Year
  Sex: Female
  Weight: 58 kg

DRUGS (15)
  1. SPIRIVA [Suspect]
     Indication: CHRONIC OBSTRUCTIVE PULMONARY DISEASE
     Dosage: 18 MCG
     Route: 055
     Dates: start: 2008
  2. SPIRIVA [Suspect]
     Indication: ASTHMA
  3. VENTOLIN [Concomitant]
     Indication: CHRONIC OBSTRUCTIVE PULMONARY DISEASE
  4. VENTOLIN [Concomitant]
     Indication: ASTHMA
  5. ALBUTEROL [Concomitant]
     Indication: CHRONIC OBSTRUCTIVE PULMONARY DISEASE
  6. ALBUTEROL [Concomitant]
     Indication: ASTHMA
  7. LISINOPRIL HCTZ [Concomitant]
     Indication: HYPERTENSION
  8. CYMBALTA [Concomitant]
     Indication: DEPRESSION
  9. KLONOPIN [Concomitant]
     Indication: DEPRESSION
     Dates: start: 20130520
  10. PROMETHAZINE [Concomitant]
  11. MAGNESIUM OXIDE [Concomitant]
  12. DURAGESIC PATCH [Concomitant]
     Indication: PAIN
  13. PERCOCET [Concomitant]
     Indication: PAIN
  14. LYRICA [Concomitant]
     Indication: FIBROMYALGIA
  15. XANAX [Concomitant]
     Dates: end: 20130520

REACTIONS (2)
  - Lung abscess [Not Recovered/Not Resolved]
  - Pneumonia [Recovered/Resolved]
